FAERS Safety Report 10742252 (Version 1)
Quarter: 2015Q1

REPORT INFORMATION
  Report Type: Spontaneous
  Country: US (occurrence: None)
  Receive Date: 20150123
  Receipt Date: 20150123
  Transmission Date: 20150721
  Serious: Yes (Disabling)
  Sender: FDA-Public Use
  Company Number: None

PATIENT
  Age: 30 Year
  Sex: Female
  Weight: 52.16 kg

DRUGS (1)
  1. CIPROFLOXACIN. [Suspect]
     Active Substance: CIPROFLOXACIN
     Indication: URINARY TRACT INFECTION
     Route: 048
     Dates: start: 20150116, end: 20150118

REACTIONS (15)
  - Asthenia [None]
  - Decreased appetite [None]
  - Vomiting [None]
  - Ageusia [None]
  - Toxicity to various agents [None]
  - Eye irritation [None]
  - Headache [None]
  - Hypoaesthesia [None]
  - Fatigue [None]
  - Myalgia [None]
  - Arthralgia [None]
  - Nausea [None]
  - Dizziness [None]
  - Pyrexia [None]
  - Panic reaction [None]

NARRATIVE: CASE EVENT DATE: 20150118
